FAERS Safety Report 15155824 (Version 1)
Quarter: 2018Q3

REPORT INFORMATION
  Report Type: Spontaneous
  Country: AU (occurrence: AU)
  Receive Date: 20180717
  Receipt Date: 20180717
  Transmission Date: 20181010
  Serious: Yes (Other)
  Sender: FDA-Public Use
  Company Number: AU-US WORLDMEDS, LLC-STA_00018144

PATIENT
  Age: 37 Year
  Sex: Male

DRUGS (2)
  1. SEROQUEL [Concomitant]
     Active Substance: QUETIAPINE FUMARATE
  2. APOMORPHINE HYDROCHLORIDE [Suspect]
     Active Substance: APOMORPHINE HYDROCHLORIDE
     Indication: PARKINSON^S DISEASE
     Dosage: 1:1.3

REACTIONS (6)
  - Suicide attempt [Unknown]
  - Impulse-control disorder [Unknown]
  - Depressed mood [Unknown]
  - Libido increased [Unknown]
  - Compulsive sexual behaviour [Unknown]
  - Gambling [Unknown]
